FAERS Safety Report 7316018-5 (Version None)
Quarter: 2011Q1

REPORT INFORMATION
  Report Type: 
  Country: None (occurrence: None)
  Receive Date: 20110225
  Receipt Date: 20110216
  Transmission Date: 20110831
  Serious: Yes (Hospitalization)
  Sender: FDA-Public Use
  Company Number: PHHY2011BE12401

PATIENT

DRUGS (1)
  1. EXELON [Suspect]
     Dosage: 3 MG, BID

REACTIONS (2)
  - SHOCK [None]
  - PERFORATED ULCER [None]
